FAERS Safety Report 18007549 (Version 1)
Quarter: 2020Q3

REPORT INFORMATION
  Report Type: Report from Study
  Country: IT (occurrence: IT)
  Receive Date: 20200710
  Receipt Date: 20200710
  Transmission Date: 20201103
  Serious: Yes (Hospitalization)
  Sender: FDA-Public Use
  Company Number: IT-JNJFOC-20200707302

PATIENT
  Age: 80 Year
  Sex: Female

DRUGS (5)
  1. OMEPRAZOLE. [Concomitant]
     Active Substance: OMEPRAZOLE
  2. AMLODIPINE [Concomitant]
     Active Substance: AMLODIPINE BESYLATE
  3. RIVAROXABAN [Suspect]
     Active Substance: RIVAROXABAN
     Indication: ATRIAL FIBRILLATION
     Dosage: 20 MG, QD
     Route: 048
     Dates: start: 20190716, end: 20200526
  4. DOXAZOSIN [Concomitant]
     Active Substance: DOXAZOSIN MESYLATE
  5. PERINDOPRIL [Concomitant]
     Active Substance: PERINDOPRIL

REACTIONS (2)
  - Dyspnoea [Unknown]
  - Haemoptysis [Unknown]

NARRATIVE: CASE EVENT DATE: 20200525
